FAERS Safety Report 6251400-9 (Version None)
Quarter: 2009Q2

REPORT INFORMATION
  Report Type: 
  Country: None (occurrence: None)
  Receive Date: 20090630
  Receipt Date: 20090625
  Transmission Date: 20091009
  Serious: Yes (Death)
  Sender: FDA-Public Use
  Company Number: PHHY2009BR25760

PATIENT
  Sex: Female

DRUGS (13)
  1. DIOVAN [Suspect]
     Indication: ARRHYTHMIA
     Dosage: UNK
     Route: 048
     Dates: start: 20080501
  2. DIOVAN HCT [Suspect]
     Indication: ARRHYTHMIA
     Route: 048
  3. NOVOLIN N [Concomitant]
     Indication: DIABETES MELLITUS
  4. GLUCOVANCE [Concomitant]
     Indication: DIABETES MELLITUS
  5. FUROSEMIDE INTENSOL [Concomitant]
     Indication: ARRHYTHMIA
  6. ASPIRIN [Concomitant]
     Indication: VASCULAR FRAGILITY
  7. GLIBENCLAMIDE [Concomitant]
     Indication: DIABETES MELLITUS
  8. HYDRALAZINE HCL [Concomitant]
  9. MIACALZEN [Concomitant]
     Indication: OSTEOARTHRITIS
  10. ARTROLIVE [Concomitant]
     Indication: OSTEOARTHRITIS
  11. CITALOPRAM HYDROBROMIDE [Concomitant]
     Indication: DEPRESSION
  12. MELATOL [Concomitant]
     Indication: IRREGULAR SLEEP PHASE
  13. DORMONID [Concomitant]
     Indication: IRREGULAR SLEEP PHASE

REACTIONS (8)
  - CARDIAC ARREST [None]
  - CEREBRAL ISCHAEMIA [None]
  - CEREBROVASCULAR ACCIDENT [None]
  - FAECAL INCONTINENCE [None]
  - FEELING ABNORMAL [None]
  - HYPOAESTHESIA [None]
  - HYPOTHERMIA [None]
  - SYNCOPE [None]
